FAERS Safety Report 21148007 (Version 2)
Quarter: 2022Q4

REPORT INFORMATION
  Report Type: Spontaneous
  Country: US (occurrence: None)
  Receive Date: 20220729
  Receipt Date: 20221005
  Transmission Date: 20230113
  Serious: No
  Sender: FDA-Public Use
  Company Number: 2022A268375

PATIENT
  Age: 966 Month
  Sex: Female

DRUGS (1)
  1. BUDESONIDE\FORMOTEROL\GLYCOPYRRONIUM [Suspect]
     Active Substance: BUDESONIDE\FORMOTEROL\GLYCOPYRRONIUM
     Indication: Chronic obstructive pulmonary disease
     Dosage: 160/9/4.8MCG, 120 ACTUATION INHALER, TWO PUFFS TWICE A DAY
     Route: 055
     Dates: start: 2020

REACTIONS (6)
  - Dyspnoea exertional [Recovering/Resolving]
  - Device use issue [Recovered/Resolved]
  - Device delivery system issue [Recovered/Resolved]
  - Product taste abnormal [Recovered/Resolved]
  - Device malfunction [Recovered/Resolved]
  - Drug dose omission by device [Unknown]

NARRATIVE: CASE EVENT DATE: 20220701
